FAERS Safety Report 4561070-3 (Version None)
Quarter: 2005Q1

REPORT INFORMATION
  Report Type: 
  Country: None (occurrence: None)
  Receive Date: 20050126
  Receipt Date: 20041109
  Transmission Date: 20050727
  Serious: No
  Sender: FDA-Public Use
  Company Number: US-BRISTOL-MYERS SQUIBB COMPANY-12759940

PATIENT
  Age: 57 Year
  Sex: Female
  Weight: 147 kg

DRUGS (6)
  1. GLUCOPHAGE [Suspect]
     Indication: DIABETES MELLITUS
     Route: 048
  2. AVANDAMET [Suspect]
     Indication: DIABETES MELLITUS
     Dosage: 4 TABLETS DAILY, EACH TABLET 4/1000 MG ROSIGLITAZONE/METFORMIN
     Route: 048
     Dates: start: 20040101
  3. AVALIDE [Concomitant]
  4. TOPROL-XL [Concomitant]
  5. DIOVAN HCT [Concomitant]
     Dosage: DOSE: 160MG VALSARTAN/12.5MG HCTZ
     Dates: start: 20040101
  6. BEXTRA [Concomitant]

REACTIONS (2)
  - MEDICATION ERROR [None]
  - NO ADVERSE EFFECT [None]
